FAERS Safety Report 24442259 (Version 2)
Quarter: 2024Q4

REPORT INFORMATION
  Report Type: Report from Study
  Country: CL (occurrence: CL)
  Receive Date: 20241016
  Receipt Date: 20241017
  Transmission Date: 20250114
  Serious: No
  Sender: ROCHE
  Company Number: CL-ROCHE-3535161

PATIENT
  Age: 48 Year
  Sex: Male
  Weight: 105.0 kg

DRUGS (3)
  1. HEMLIBRA [Suspect]
     Active Substance: EMICIZUMAB-KXWH
     Indication: Haemophilia
     Dosage: DOSE: 150 MG/1 ML
     Route: 058
     Dates: start: 20230315
  2. CELEBRA [Concomitant]
     Active Substance: CELECOXIB
     Indication: Pain
     Dosage: AS REQUIRED (SOS)
  3. OMEPRAZOLE [Concomitant]
     Active Substance: OMEPRAZOLE
     Dates: start: 2009

REACTIONS (2)
  - Arthralgia [Recovered/Resolved]
  - Pain [Recovered/Resolved]

NARRATIVE: CASE EVENT DATE: 20240201
